FAERS Safety Report 16831834 (Version 1)
Quarter: 2019Q3

REPORT INFORMATION
  Report Type: Spontaneous
  Country: IN (occurrence: IN)
  Receive Date: 20190920
  Receipt Date: 20190920
  Transmission Date: 20191005
  Serious: Yes (Other)
  Sender: FDA-Public Use
  Company Number: IN-ROCHE-2408800

PATIENT
  Age: 4 Week
  Sex: Male
  Weight: 1.35 kg

DRUGS (1)
  1. RANIBIZUMAB. [Suspect]
     Active Substance: RANIBIZUMAB
     Indication: RETINOPATHY
     Route: 050

REACTIONS (4)
  - Hypopyon [Unknown]
  - Vitritis [Unknown]
  - Conjunctival hyperaemia [Unknown]
  - Endophthalmitis [Unknown]
